FAERS Safety Report 9547750 (Version 2)
Quarter: 2013Q3

REPORT INFORMATION
  Report Type: Report from Study
  Country: DE (occurrence: DE)
  Receive Date: 20130924
  Receipt Date: 20130924
  Transmission Date: 20140515
  Serious: Yes (Hospitalization)
  Sender: FDA-Public Use
  Company Number: DE-ASTELLAS-2010EU006817

PATIENT
  Age: 58 Year
  Sex: Male
  Weight: 90.5 kg

DRUGS (17)
  1. TACROLIMUS MR4 CAPSULES [Suspect]
     Indication: RENAL TRANSPLANT
     Dosage: 12 MG, UID/QD
     Route: 048
     Dates: start: 20101201, end: 20101218
  2. TACROLIMUS MR4 CAPSULES [Suspect]
     Dosage: 8 MG, UNKNOWN/D
     Route: 065
     Dates: start: 20101220
  3. THYMOGLOBULINE [Suspect]
     Indication: RENAL TRANSPLANT
     Dosage: 100 MG, UID/QD
     Route: 042
     Dates: start: 20101201
  4. THYMOGLOBULINE [Suspect]
     Dosage: 100 MG, UID/QD
     Route: 042
     Dates: start: 20101203
  5. CELLCEPT [Suspect]
     Indication: RENAL TRANSPLANT
     Dosage: 500 MG, BID
     Route: 048
     Dates: start: 20101201
  6. CELLCEPT [Suspect]
     Dosage: 1000 MG, BID
     Route: 048
     Dates: start: 20101216
  7. PREDNISOLONE [Suspect]
     Indication: RENAL TRANSPLANT
     Dosage: 12.5 MG, BID
     Route: 048
     Dates: start: 20101201
  8. PREDNISOLONE [Suspect]
     Dosage: 12.5 MG, UID/QD
     Route: 048
     Dates: start: 20101207
  9. VALCYTE [Concomitant]
     Dosage: 225 MG, UNKNOWN/D
     Route: 065
     Dates: start: 20101210
  10. VALSARTAN [Concomitant]
     Dosage: UNK
     Route: 065
     Dates: start: 20101207, end: 20101216
  11. ASS [Concomitant]
     Dosage: 100 MG, UNKNOWN/D
     Route: 065
     Dates: start: 20101210, end: 20101216
  12. PANTOZOL [Concomitant]
     Dosage: 40 MG, UNKNOWN/D
     Route: 065
     Dates: start: 20101201
  13. PRAVASIN [Concomitant]
     Dosage: 40 MG, UNKNOWN/D
     Route: 065
     Dates: start: 20101203
  14. ROCALTROL [Concomitant]
     Dosage: 0.25 UG, UNKNOWN/D
     Route: 065
     Dates: start: 20101203
  15. BELOK ZOT MITE [Concomitant]
     Dosage: 35 MG, UNKNOWN/D
     Route: 065
  16. ZYLORIC [Concomitant]
     Dosage: UNK
     Route: 065
     Dates: start: 20101207, end: 20101216
  17. NORVASC [Concomitant]
     Dosage: UNK
     Route: 065
     Dates: start: 20101208, end: 20101216

REACTIONS (1)
  - Acute prerenal failure [Recovered/Resolved]
